FAERS Safety Report 24632317 (Version 1)
Quarter: 2024Q4

REPORT INFORMATION
  Report Type: Spontaneous
  Country: US (occurrence: None)
  Receive Date: 20241118
  Receipt Date: 20241118
  Transmission Date: 20250115
  Serious: No
  Sender: Public
  Company Number: None

PATIENT
  Age: 75 Year
  Sex: Male
  Weight: 93 kg

DRUGS (1)
  1. WARFARIN SODIUM [Suspect]
     Active Substance: WARFARIN SODIUM
     Indication: Deep vein thrombosis
     Dates: start: 20230921, end: 20240929

REACTIONS (5)
  - Deep vein thrombosis [None]
  - Condition aggravated [None]
  - Peripheral swelling [None]
  - Haemorrhage [None]
  - Therapy change [None]

NARRATIVE: CASE EVENT DATE: 20240929
